FAERS Safety Report 8241662-0 (Version None)
Quarter: 2012Q1

REPORT INFORMATION
  Report Type: 
  Country: None (occurrence: None)
  Receive Date: 20120328
  Receipt Date: 20120314
  Transmission Date: 20120608
  Serious: Yes (Other)
  Sender: FDA-Public Use
  Company Number: CHPA2012US005077

PATIENT
  Age: 18 Year
  Sex: Male

DRUGS (1)
  1. EXCEDRIN (MIGRAINE) [Suspect]
     Indication: MIGRAINE
     Dosage: 2 DF, UNK
     Route: 048
     Dates: start: 20120313, end: 20120313

REACTIONS (3)
  - MIGRAINE [None]
  - PAIN [None]
  - ABASIA [None]
